FAERS Safety Report 6557327-7 (Version None)
Quarter: 2010Q1

REPORT INFORMATION
  Report Type: 
  Country: None (occurrence: None)
  Receive Date: 20100128
  Receipt Date: 20100128
  Transmission Date: 20100710
  Serious: No
  Sender: FDA-Public Use
  Company Number: None

PATIENT
  Sex: Female
  Weight: 104.3273 kg

DRUGS (3)
  1. MOTRIN [Suspect]
     Indication: ABDOMINAL PAIN
     Dosage: 2 TABLETS 3-4 TIMES DAILY PO
     Route: 048
     Dates: start: 20091120, end: 20100106
  2. MOTRIN [Suspect]
     Indication: HEADACHE
     Dosage: 2 TABLETS 3-4 TIMES DAILY PO
     Route: 048
     Dates: start: 20091120, end: 20100106
  3. MOTRIN [Suspect]
     Indication: PAIN IN EXTREMITY
     Dosage: 2 TABLETS 3-4 TIMES DAILY PO
     Route: 048
     Dates: start: 20091120, end: 20100106

REACTIONS (5)
  - ABDOMINAL PAIN [None]
  - CHEST PAIN [None]
  - DECREASED APPETITE [None]
  - HEADACHE [None]
  - PRODUCT QUALITY ISSUE [None]
